FAERS Safety Report 5306109-2 (Version None)
Quarter: 2007Q2

REPORT INFORMATION
  Report Type: 
  Country: None (occurrence: None)
  Receive Date: 20070424
  Receipt Date: 20070122
  Transmission Date: 20071010
  Serious: No
  Sender: FDA-Public Use
  Company Number: US-BRISTOL-MYERS SQUIBB COMPANY-13651732

PATIENT
  Age: 65 Year
  Sex: Female
  Weight: 63 kg

DRUGS (3)
  1. CARBOPLATIN [Suspect]
     Indication: NEOPLASM MALIGNANT
     Dates: start: 20070117, end: 20070117
  2. RADIATION THERAPY [Concomitant]
     Indication: NEOPLASM MALIGNANT
     Dates: start: 20070103
  3. ERBITUX [Concomitant]

REACTIONS (1)
  - STOMATITIS [None]
